FAERS Safety Report 25061430 (Version 1)
Quarter: 2025Q1

REPORT INFORMATION
  Report Type: Spontaneous
  Country: HN (occurrence: HN)
  Receive Date: 20250311
  Receipt Date: 20250311
  Transmission Date: 20250408
  Serious: Yes (Other)
  Sender: NOVO NORDISK
  Company Number: HN-NOVOPROD-1382511

PATIENT
  Sex: Male

DRUGS (2)
  1. OZEMPIC [Suspect]
     Active Substance: SEMAGLUTIDE
     Indication: Product used for unknown indication
     Dates: start: 20250106, end: 20250120
  2. NYSTATIN [Concomitant]
     Active Substance: NYSTATIN

REACTIONS (1)
  - Rhabdomyolysis [Unknown]
